FAERS Safety Report 8485549-7 (Version None)
Quarter: 2012Q2

REPORT INFORMATION
  Report Type: 
  Country: None (occurrence: None)
  Receive Date: 20120627
  Receipt Date: 20120627
  Transmission Date: 20120825
  Serious: No
  Sender: FDA-Public Use
  Company Number: None

PATIENT
  Age: 72 Year
  Sex: Male
  Weight: 87.0906 kg

DRUGS (1)
  1. PRADAXA [Suspect]

REACTIONS (1)
  - LOEFFLER'S SYNDROME [None]
